FAERS Safety Report 11390354 (Version 1)
Quarter: 2015Q3

REPORT INFORMATION
  Report Type: Spontaneous
  Country: US (occurrence: US)
  Receive Date: 20150818
  Receipt Date: 20150818
  Transmission Date: 20151125
  Serious: Yes (Other)
  Sender: FDA-Public Use
  Company Number: US-ROCHE-1358979

PATIENT
  Sex: Female

DRUGS (3)
  1. RIBAVIRIN. [Suspect]
     Active Substance: RIBAVIRIN
     Indication: CHRONIC HEPATITIS C
     Dosage: IN DIVIDED DOSES, 600/400 MG
     Route: 065
     Dates: start: 20140215, end: 20140504
  2. SOVALDI [Suspect]
     Active Substance: SOFOSBUVIR
     Indication: CHRONIC HEPATITIS C
     Route: 048
     Dates: start: 20140215, end: 20140504
  3. PEGASYS [Suspect]
     Active Substance: PEGINTERFERON ALFA-2A
     Indication: CHRONIC HEPATITIS C
     Route: 058
     Dates: start: 20140215, end: 20140504

REACTIONS (16)
  - Rash pruritic [Unknown]
  - Asthenia [Unknown]
  - Influenza [Unknown]
  - Arthralgia [Unknown]
  - Suicidal ideation [Unknown]
  - Emotional disorder [Unknown]
  - Crying [Unknown]
  - Insomnia [Unknown]
  - Injection site extravasation [Unknown]
  - Underdose [Unknown]
  - Drug administration error [Unknown]
  - Fatigue [Unknown]
  - Alopecia [Unknown]
  - Chills [Unknown]
  - Muscle spasms [Unknown]
  - Headache [Unknown]
